FAERS Safety Report 5771736-5 (Version None)
Quarter: 2008Q2

REPORT INFORMATION
  Report Type: 
  Country: None (occurrence: None)
  Receive Date: 20080611
  Receipt Date: 20080603
  Transmission Date: 20081010
  Serious: Yes (Hospitalization)
  Sender: FDA-Public Use
  Company Number: 2008AL006486

PATIENT
  Age: 75 Year
  Sex: Female

DRUGS (3)
  1. DILTIAZEM [Suspect]
     Indication: TACHYARRHYTHMIA
  2. DIGOXIN [Concomitant]
  3. METOPROLOL [Concomitant]

REACTIONS (7)
  - ATRIAL FIBRILLATION [None]
  - ERYTHEMA MULTIFORME [None]
  - HEART RATE INCREASED [None]
  - MALAISE [None]
  - NONSPECIFIC REACTION [None]
  - PYREXIA [None]
  - RESPIRATORY RATE INCREASED [None]
